FAERS Safety Report 16731144 (Version 1)
Quarter: 2019Q3

REPORT INFORMATION
  Report Type: Spontaneous
  Country: ES (occurrence: ES)
  Receive Date: 20190822
  Receipt Date: 20190822
  Transmission Date: 20191005
  Serious: Yes (Death)
  Sender: FDA-Public Use
  Company Number: ES-MYLANLABS-2019M1077466

PATIENT
  Age: 15 Year
  Sex: Female

DRUGS (24)
  1. METHOTREXATE. [Suspect]
     Active Substance: METHOTREXATE
     Dosage: UNK, CYCLIC (CUMULATIVE DOSE 246 G/M2)
  2. METHOTREXATE. [Suspect]
     Active Substance: METHOTREXATE
     Indication: OSTEOSARCOMA
     Dosage: 6 COURSES, 10 G/M2/WEEK EVERY FOURTH WEEK)
  3. BLEOMYCIN [Suspect]
     Active Substance: BLEOMYCIN SULFATE
     Indication: OSTEOSARCOMA
     Dosage: 30 MG/M2, CYCLIC
  4. CARBOPLATIN. [Suspect]
     Active Substance: CARBOPLATIN
     Indication: OSTEOSARCOMA
     Dosage: 150 MG/M2, CYCLIC
     Route: 013
     Dates: start: 198902
  5. CARBOPLATIN. [Suspect]
     Active Substance: CARBOPLATIN
     Dosage: 600 MG/M2, CYCLIC
     Dates: start: 199312, end: 199410
  6. DOXORUBICIN HYDROCHLORIDE. [Suspect]
     Active Substance: DOXORUBICIN HYDROCHLORIDE
     Indication: OSTEOSARCOMA
     Dosage: CYCLE
  7. DOXORUBICIN HYDROCHLORIDE. [Suspect]
     Active Substance: DOXORUBICIN HYDROCHLORIDE
     Dosage: 90 MILLIGRAM/SQ. METER, CYCLE
     Dates: start: 198902
  8. CYTARABINE. [Suspect]
     Active Substance: CYTARABINE
     Dosage: UNK, CYCLIC, 1 G/M2 X 6 DAYS
  9. CISPLATIN. [Suspect]
     Active Substance: CISPLATIN
     Dosage: UNK, CYCLIC (CUMULATIVE DOSE 280 MG/M2)
  10. CARBOPLATIN. [Suspect]
     Active Substance: CARBOPLATIN
     Dosage: 100 MG/M2, CYCLIC
  11. METHOTREXATE. [Suspect]
     Active Substance: METHOTREXATE
     Dosage: CYCLIC, (3 COURSES, 12 G/M2)
     Dates: start: 198902
  12. ETOPOSIDE. [Suspect]
     Active Substance: ETOPOSIDE
     Indication: OSTEOSARCOMA
     Dosage: 400 MG/M2, CYCLIC
     Dates: start: 199312, end: 199410
  13. ETOPOSIDE. [Suspect]
     Active Substance: ETOPOSIDE
     Dosage: UNK, CYCLIC (CUMULATIVE DOSE 4000 MG/M2)
  14. IFOSFAMIDE. [Suspect]
     Active Substance: IFOSFAMIDE
     Indication: OSTEOSARCOMA
     Dosage: UNK UNK, CYCLE
  15. CYTARABINE. [Suspect]
     Active Substance: CYTARABINE
     Indication: OSTEOSARCOMA
     Dosage: 100 MG/M2, CYCLIC
  16. DACTINOMYCIN [Suspect]
     Active Substance: DACTINOMYCIN
     Indication: OSTEOSARCOMA
     Dosage: 1.8 MG/M2, CYCLIC
  17. DOXORUBICIN HYDROCHLORIDE. [Suspect]
     Active Substance: DOXORUBICIN HYDROCHLORIDE
     Dosage: 50 MILLIGRAM/SQ. METER, CYCLE
  18. DOXORUBICIN HYDROCHLORIDE. [Suspect]
     Active Substance: DOXORUBICIN HYDROCHLORIDE
     Dosage: UNK, CYCLIC (CUMULATIVE DOSE 570A MG/M2)
  19. IFOSFAMIDE. [Suspect]
     Active Substance: IFOSFAMIDE
     Dosage: UNK, CYCLIC (CUMULATIVE DOSE 4.5G/M2)
  20. CYTARABINE. [Suspect]
     Active Substance: CYTARABINE
     Dosage: UNK (LOW DOSE)
  21. VINCRISTINE SULFATE. [Suspect]
     Active Substance: VINCRISTINE SULFATE
     Indication: OSTEOSARCOMA
     Dosage: 1.75 MG/M2, CYCLIC (3 COURSES)
     Dates: start: 198902
  22. ETOPOSIDE. [Suspect]
     Active Substance: ETOPOSIDE
     Dosage: 100 MG/M2, CYCLIC
  23. METHOTREXATE. [Suspect]
     Active Substance: METHOTREXATE
     Indication: GRAFT VERSUS HOST DISEASE
     Dosage: CYCLIC, (HIGH DOSES 15 G/M2)
     Dates: start: 199312, end: 199410
  24. CISPLATIN. [Suspect]
     Active Substance: CISPLATIN
     Indication: OSTEOSARCOMA
     Dosage: 40 MG/M2, CYCLIC

REACTIONS (3)
  - Leukaemia [Fatal]
  - Second primary malignancy [Fatal]
  - Acute myeloid leukaemia [Fatal]
